FAERS Safety Report 17543423 (Version 1)
Quarter: 2020Q1

REPORT INFORMATION
  Report Type: Spontaneous
  Country: MX (occurrence: MX)
  Receive Date: 20200316
  Receipt Date: 20200316
  Transmission Date: 20200409
  Serious: Yes (Other)
  Sender: FDA-Public Use
  Company Number: MX-TERSERA THERAPEUTICS LLC-2020TRS000657

PATIENT

DRUGS (1)
  1. ZOLADEX [Suspect]
     Active Substance: GOSERELIN ACETATE
     Indication: PROSTATE CANCER
     Dosage: 10.8 MG, MONTHLY
     Route: 058
     Dates: start: 201806

REACTIONS (3)
  - Malignant neoplasm progression [Unknown]
  - Product dose omission [Unknown]
  - Overdose [Unknown]

NARRATIVE: CASE EVENT DATE: 201912
